FAERS Safety Report 8150921-1 (Version None)
Quarter: 2012Q1

REPORT INFORMATION
  Report Type: 
  Country: None (occurrence: None)
  Receive Date: 20120220
  Receipt Date: 20120213
  Transmission Date: 20120608
  Serious: Yes (Other)
  Sender: FDA-Public Use
  Company Number: PHHY2012JP013908

PATIENT
  Age: 2 Year

DRUGS (1)
  1. ZADITEN [Suspect]
     Dosage: UNK
     Route: 048

REACTIONS (1)
  - FEBRILE CONVULSION [None]
